FAERS Safety Report 13574663 (Version 1)
Quarter: 2017Q2

REPORT INFORMATION
  Report Type: Spontaneous
  Country: US (occurrence: US)
  Receive Date: 20170523
  Receipt Date: 20170523
  Transmission Date: 20170830
  Serious: No
  Sender: FDA-Public Use
  Company Number: US-SA-2017SA004931

PATIENT
  Age: 65 Year
  Sex: Female

DRUGS (2)
  1. RIFADIN [Suspect]
     Active Substance: RIFAMPIN
     Route: 065
  2. ISONIAZIDE [Concomitant]
     Active Substance: ISONIAZID

REACTIONS (1)
  - Diarrhoea [Unknown]
